FAERS Safety Report 18128508 (Version 2)
Quarter: 2020Q3

REPORT INFORMATION
  Report Type: Spontaneous
  Country: DE (occurrence: DE)
  Receive Date: 20200810
  Receipt Date: 20200813
  Transmission Date: 20201103
  Serious: Yes (Death)
  Sender: FDA-Public Use
  Company Number: DE-ACTELION-A-CH2020-207927

PATIENT
  Age: 66 Year
  Sex: Male

DRUGS (12)
  1. ALLOPURINOL. [Concomitant]
     Active Substance: ALLOPURINOL
  2. INSULIN RAPID [Concomitant]
     Active Substance: INSULIN NOS
  3. VELETRI [Suspect]
     Active Substance: EPOPROSTENOL
     Indication: PULMONARY ARTERIAL HYPERTENSION
     Dosage: 5.7 NG/KG, PER MIN
     Route: 042
     Dates: start: 20200630, end: 20200730
  4. ELIQUIS [Concomitant]
     Active Substance: APIXABAN
  5. TOREM [TORASEMIDE] [Concomitant]
     Active Substance: TORSEMIDE
  6. INSULIN BASAL [Concomitant]
     Active Substance: INSULIN NOS
  7. SILDENAFIL. [Concomitant]
     Active Substance: SILDENAFIL
     Dosage: UNK
     Dates: start: 201912, end: 20200730
  8. PREDNISOLON [PREDNISOLONE] [Concomitant]
     Active Substance: PREDNISOLONE
  9. PANTOZOLE [Concomitant]
     Active Substance: PANTOPRAZOLE SODIUM
  10. KALINOR?BRAUSETABLETTEN [Concomitant]
     Active Substance: POTASSIUM CARBONATE\POTASSIUM CITRATE
  11. OXYGEN. [Concomitant]
     Active Substance: OXYGEN
  12. OPSUMIT [Concomitant]
     Active Substance: MACITENTAN
     Dosage: UNK
     Dates: start: 201808, end: 20200730

REACTIONS (2)
  - Syncope [Fatal]
  - Haemodynamic instability [Fatal]

NARRATIVE: CASE EVENT DATE: 20200730
